FAERS Safety Report 9258597 (Version 1)
Quarter: 2013Q2

REPORT INFORMATION
  Report Type: Spontaneous
  Country: US (occurrence: None)
  Receive Date: 20130425
  Receipt Date: 20130425
  Transmission Date: 20140414
  Serious: Yes (Hospitalization)
  Sender: FDA-Public Use
  Company Number: None

PATIENT
  Age: 57 Year
  Sex: Male
  Weight: 81 kg

DRUGS (22)
  1. AZACITIDINE [Suspect]
     Indication: ACUTE MYELOID LEUKAEMIA
     Dosage: 78 MG DAILY X 5DAYS 28 DAYS SQ
     Dates: start: 20121231, end: 20130417
  2. VALPROIC ACID [Suspect]
     Indication: ACUTE MYELOID LEUKAEMIA
     Route: 048
     Dates: start: 20121231, end: 20130413
  3. COMBIVENT INHALER [Concomitant]
  4. ASPIRIN [Concomitant]
  5. WELLBUTRIN XL [Concomitant]
  6. DIGOXIN [Concomitant]
  7. CARDIZEM CD [Concomitant]
  8. AVODAR [Concomitant]
  9. ADVAIR DISKUS [Concomitant]
  10. FLUTICASONE [Concomitant]
  11. FOLIC ACID [Concomitant]
  12. ATIVAN [Concomitant]
  13. SINGULAIR [Concomitant]
  14. MULTIPLE VITAMIN [Concomitant]
  15. ZOFRAN [Concomitant]
  16. PANTOPRAZOLE [Concomitant]
  17. PROCHLORPERAZINE [Concomitant]
  18. BACTRIM [Concomitant]
  19. TACROLIMUS [Concomitant]
  20. MOXIFLOXACIN [Concomitant]
  21. VALACYCLOVIR [Concomitant]
  22. VORICONAZOLE [Concomitant]

REACTIONS (7)
  - Hypoxia [None]
  - Infection [None]
  - Atypical pneumonia [None]
  - Graft versus host disease [None]
  - Sinus bradycardia [None]
  - Supraventricular extrasystoles [None]
  - Atrial flutter [None]
